FAERS Safety Report 10917561 (Version 1)
Quarter: 2015Q1

REPORT INFORMATION
  Report Type: Spontaneous
  Country: CN (occurrence: CN)
  Receive Date: 20150316
  Receipt Date: 20150316
  Transmission Date: 20150721
  Serious: Yes (Hospitalization)
  Sender: FDA-Public Use
  Company Number: CN-ASTRAZENECA-2015SE23669

PATIENT
  Age: 61 Year
  Sex: Female
  Weight: 80 kg

DRUGS (2)
  1. PLENDIL [Suspect]
     Active Substance: FELODIPINE
     Indication: HYPERTENSION
     Route: 048
     Dates: start: 20110101, end: 20140821
  2. LINGZHIYISHOU JIAONANG [Suspect]
     Active Substance: HERBALS
     Route: 048
     Dates: start: 20140401, end: 20140630

REACTIONS (5)
  - Cholecystitis [Unknown]
  - Cholelithiasis [Unknown]
  - Weight decreased [Unknown]
  - Drug-induced liver injury [Not Recovered/Not Resolved]
  - Mental impairment [Unknown]
